FAERS Safety Report 6934018-1 (Version None)
Quarter: 2010Q3

REPORT INFORMATION
  Report Type: 
  Country: None (occurrence: None)
  Receive Date: 20100820
  Receipt Date: 20100811
  Transmission Date: 20110219
  Serious: Yes (Death)
  Sender: FDA-Public Use
  Company Number: CH-PFIZER INC-2009198774

PATIENT
  Age: 46 Year
  Sex: Male

DRUGS (12)
  1. XANAX [Suspect]
     Dosage: 0.5 MG, 2X/DAY
     Route: 048
  2. MORPHINE SULFATE [Suspect]
     Dosage: 2 MG, 3X/DAY
     Route: 058
  3. CODEINE PHOSPHATE HEMIHYDRATE [Suspect]
     Dosage: 25 MG, 2X/DAY
     Route: 048
  4. STILNOX [Suspect]
     Dosage: 5 MG, 1X/DAY
     Route: 048
  5. MEPHAMESON [Concomitant]
     Dosage: 2 MG, 3X/DAY
     Route: 040
  6. NEUPOGEN [Concomitant]
     Dosage: 30 MILLIONIU, 1X/DAY
     Route: 058
  7. FOLVITE [Concomitant]
     Dosage: 5 MG, 1X/DAY
     Route: 048
  8. TORASEMIDE [Concomitant]
     Dosage: 10 MG, 1X/DAY
     Route: 048
  9. ZYLORIC ^GLAXO WELLCOME^ [Concomitant]
     Dosage: 300 MG, 1X/DAY
     Route: 048
  10. MYCOSTATIN [Concomitant]
     Dosage: 1 ML, 2X/DAY
     Route: 048
  11. LAXOBERON [Concomitant]
     Dosage: 20 GTT, 1X/DAY
     Route: 048
  12. FRANGULA EXTRACT [Concomitant]
     Dosage: 15 MG, 3X/DAY
     Route: 048

REACTIONS (1)
  - RESPIRATORY DEPRESSION [None]
